FAERS Safety Report 6619266-2 (Version None)
Quarter: 2010Q1

REPORT INFORMATION
  Report Type: 
  Country: None (occurrence: None)
  Receive Date: 20100303
  Receipt Date: 20100219
  Transmission Date: 20100710
  Serious: Yes (Hospitalization)
  Sender: FDA-Public Use
  Company Number: 008772

PATIENT
  Age: 82 Year
  Sex: Male

DRUGS (4)
  1. PLETAL [Suspect]
     Indication: INTERMITTENT CLAUDICATION
     Dosage: 100 MG, BID ORAL
     Route: 048
     Dates: start: 20100104, end: 20100127
  2. OMEPRAZOLE [Concomitant]
  3. ACETAMINOPHEN [Concomitant]
  4. TELMISARTAN [Concomitant]

REACTIONS (2)
  - CARDIOGENIC SHOCK [None]
  - MYOCARDIAL INFARCTION [None]
